FAERS Safety Report 6147288-7 (Version None)
Quarter: 2009Q2

REPORT INFORMATION
  Report Type: 
  Country: None (occurrence: None)
  Receive Date: 20090408
  Receipt Date: 20090401
  Transmission Date: 20091009
  Serious: Yes (Other)
  Sender: FDA-Public Use
  Company Number: US-WYE-H08813709

PATIENT
  Sex: Female

DRUGS (7)
  1. EFFEXOR XR [Suspect]
     Indication: DEPRESSION
     Dosage: UNKNOWN
     Route: 048
     Dates: start: 20040101
  2. EFFEXOR XR [Suspect]
     Route: 048
     Dates: end: 20090322
  3. EFFEXOR XR [Suspect]
     Dosage: TAPERED IN ATTEMPTS TO DISCONTINUE EFFEXOR XR ON SEVERAL OCCASIONS
     Route: 048
  4. ULTRAM [Concomitant]
     Dosage: UP TO 10 TABLETS DAILY
     Route: 048
  5. LYRICA [Concomitant]
     Indication: FIBROMYALGIA
  6. LISINOPRIL AND HYDROCHLOROTHIAZIDE [Concomitant]
     Indication: HYPERTENSION
     Dosage: UNKNOWN
     Dates: start: 20070101
  7. VICODIN [Concomitant]
     Indication: FIBROMYALGIA
     Dosage: TWO 500 MG TABLETS AT BEDTIME
     Route: 048

REACTIONS (4)
  - ANGER [None]
  - DRUG WITHDRAWAL SYNDROME [None]
  - SUICIDAL IDEATION [None]
  - WEIGHT INCREASED [None]
